FAERS Safety Report 18294505 (Version 1)
Quarter: 2020Q3

REPORT INFORMATION
  Report Type: Spontaneous
  Country: US (occurrence: US)
  Receive Date: 20200922
  Receipt Date: 20200922
  Transmission Date: 20201103
  Serious: Yes (Hospitalization)
  Sender: FDA-Public Use
  Company Number: None

PATIENT
  Age: 84 Year
  Sex: Female
  Weight: 65.1 kg

DRUGS (1)
  1. APIXABAN [Suspect]
     Active Substance: APIXABAN
     Indication: PROPHYLAXIS
     Dosage: 2.5MG OR 5MG (BLINDED)?
     Route: 048
     Dates: start: 20200226, end: 20200916

REACTIONS (3)
  - Syncope [None]
  - Cerebrovascular accident [None]
  - Hemiparesis [None]

NARRATIVE: CASE EVENT DATE: 20200916
